FAERS Safety Report 16909420 (Version 1)
Quarter: 2019Q4

REPORT INFORMATION
  Report Type: Spontaneous
  Country: US (occurrence: US)
  Receive Date: 20191011
  Receipt Date: 20191011
  Transmission Date: 20200122
  Serious: No
  Sender: FDA-Public Use
  Company Number: US-ASTRAZENECA-2019SF13206

PATIENT
  Age: 2505 Week
  Sex: Male
  Weight: 97.5 kg

DRUGS (1)
  1. BYDUREON BCISE [Suspect]
     Active Substance: EXENATIDE
     Indication: PROPHYLAXIS
     Route: 058
     Dates: start: 20190715

REACTIONS (3)
  - Injection site pain [Recovering/Resolving]
  - Injection site mass [Recovering/Resolving]
  - Product packaging quantity issue [Unknown]

NARRATIVE: CASE EVENT DATE: 20190727
